FAERS Safety Report 5830803-8 (Version None)
Quarter: 2008Q3

REPORT INFORMATION
  Report Type: 
  Country: None (occurrence: None)
  Receive Date: 20080801
  Receipt Date: 20071203
  Transmission Date: 20090109
  Serious: No
  Sender: FDA-Public Use
  Company Number: US-BRISTOL-MYERS SQUIBB COMPANY-14001770

PATIENT
  Age: 76 Year
  Sex: Female
  Weight: 82 kg

DRUGS (10)
  1. COUMADIN [Suspect]
     Indication: ATRIAL FIBRILLATION
     Dates: start: 20070817
  2. LIPITOR [Concomitant]
  3. PREVACID [Concomitant]
  4. CORGARD [Concomitant]
  5. HYDROCHLOROTHIAZIDE [Concomitant]
  6. ZESTRIL [Concomitant]
  7. ASPIRIN [Concomitant]
  8. ZETIA [Concomitant]
  9. LIBRAX [Concomitant]
  10. VALIUM [Concomitant]

REACTIONS (2)
  - FEELING HOT [None]
  - PAIN IN EXTREMITY [None]
